FAERS Safety Report 9034830 (Version 1)
Quarter: 2013Q1

REPORT INFORMATION
  Report Type: Spontaneous
  Country: US (occurrence: None)
  Receive Date: 20130116
  Receipt Date: 20130116
  Transmission Date: 20140127
  Serious: Yes (Hospitalization)
  Sender: FDA-Public Use
  Company Number: None

PATIENT
  Sex: Female
  Weight: 87.1 kg

DRUGS (3)
  1. CARBOPLATIN [Suspect]
  2. G-CSF [Suspect]
  3. PACLITAXEL (TAXOL) [Suspect]

REACTIONS (7)
  - Nausea [None]
  - Vomiting [None]
  - Decreased appetite [None]
  - Diarrhoea [None]
  - Tachycardia [None]
  - Decreased appetite [None]
  - Ascites [None]
